FAERS Safety Report 13400238 (Version 2)
Quarter: 2017Q2

REPORT INFORMATION
  Report Type: Spontaneous
  Country: IT (occurrence: IT)
  Receive Date: 20170404
  Receipt Date: 20170406
  Transmission Date: 20170830
  Serious: Yes (Hospitalization)
  Sender: FDA-Public Use
  Company Number: IT-ROCHE-1914348

PATIENT
  Age: 59 Year
  Sex: Female

DRUGS (8)
  1. DOCETAXEL. [Suspect]
     Active Substance: DOCETAXEL
     Dosage: ^20 MG/ML  1 X 1 ML SINGLE-DOSE VIAL?CONCENTRATE FOR SOLUTION PER INFUSION^
     Route: 065
     Dates: start: 20160317, end: 20160317
  2. TACHIDOL [Concomitant]
     Active Substance: ACETAMINOPHEN\CODEINE PHOSPHATE
     Route: 048
  3. HERCEPTIN [Suspect]
     Active Substance: TRASTUZUMAB
     Indication: BREAST CANCER FEMALE
     Dosage: 150 MG 1 VIAL?POWDER FOR CONCENTRATE FOR SOLUTION FOR INTRAVENOUS INFUSION
     Route: 042
     Dates: start: 20160317, end: 20160317
  4. PANTOPRAZOLE [Concomitant]
     Active Substance: PANTOPRAZOLE
     Route: 048
  5. PERJETA [Suspect]
     Active Substance: PERTUZUMAB
     Indication: BREAST CANCER FEMALE
     Dosage: 420 MG  VIAL (GLASS) - 30 MG/ML - 1 VIAL?CONCENTRATE PER SOLUTION FOR INFUSION - INTRAVENOUS
     Route: 042
     Dates: start: 20160317, end: 20160317
  6. DOCETAXEL. [Suspect]
     Active Substance: DOCETAXEL
     Indication: BREAST CANCER FEMALE
     Dosage: ^20 MG/ML  1 X 4 ML SINGLE-DOSE VIAL?CONCENTRATE FOR SOLUTION PER INFUSION^
     Route: 065
     Dates: start: 20160317, end: 20160317
  7. SOLDESAM [Concomitant]
     Active Substance: DEXAMETHASONE
     Route: 048
  8. ARIXTRA [Concomitant]
     Active Substance: FONDAPARINUX SODIUM
     Route: 058

REACTIONS (2)
  - Respiratory failure [Recovering/Resolving]
  - Pneumonitis [Recovering/Resolving]

NARRATIVE: CASE EVENT DATE: 20160325
